FAERS Safety Report 17940117 (Version 1)
Quarter: 2020Q2

REPORT INFORMATION
  Report Type: Spontaneous
  Country: US (occurrence: US)
  Receive Date: 20200624
  Receipt Date: 20200624
  Transmission Date: 20200714
  Serious: Yes (Hospitalization)
  Sender: FDA-Public Use
  Company Number: None

PATIENT
  Age: 55 Year
  Sex: Male
  Weight: 98.43 kg

DRUGS (1)
  1. ADALIMUMAB (ADALIMUMAB 40MG/0.8ML INJ,PEN,KIT) [Suspect]
     Active Substance: ADALIMUMAB
     Indication: RHEUMATOID ARTHRITIS
     Dates: start: 20200130, end: 20200202

REACTIONS (3)
  - Swelling face [None]
  - Lip swelling [None]
  - Nasal congestion [None]

NARRATIVE: CASE EVENT DATE: 20200202
